FAERS Safety Report 11193457 (Version 1)
Quarter: 2015Q2

REPORT INFORMATION
  Report Type: Spontaneous
  Country: US (occurrence: US)
  Receive Date: 20150616
  Receipt Date: 20150616
  Transmission Date: 20150821
  Serious: Yes (Hospitalization, Other)
  Sender: FDA-Public Use
  Company Number: US-TAKEDA-2014MPI002263

PATIENT
  Age: 69 Year
  Sex: Male
  Weight: 97.51 kg

DRUGS (9)
  1. GLUCOPHAGE [Concomitant]
     Active Substance: METFORMIN HYDROCHLORIDE
     Dosage: 1000 MG, UNK
  2. VELCADE [Suspect]
     Active Substance: BORTEZOMIB
     Dosage: 3.125 MG, UNK
     Route: 042
     Dates: start: 20140624, end: 20140715
  3. REVLIMID [Suspect]
     Active Substance: LENALIDOMIDE
     Indication: PLASMA CELL MYELOMA
     Dosage: 25 MG, UNK
     Dates: start: 20140708
  4. NORVASC [Concomitant]
     Active Substance: AMLODIPINE BESYLATE
     Dosage: 10 MG, UNK
     Dates: end: 2014
  5. VELCADE [Suspect]
     Active Substance: BORTEZOMIB
     Indication: PLASMA CELL MYELOMA
     Dosage: 3.125 MG, UNK
     Route: 058
     Dates: start: 20140527, end: 20140624
  6. COUMADINE [Concomitant]
     Active Substance: WARFARIN SODIUM
     Dosage: 2.5 MG X 2 DAYS PER WEEK
  7. COUMADINE [Concomitant]
     Active Substance: WARFARIN SODIUM
     Dosage: 5 MG X 5 DAYS PER WEEK
  8. ACUPRIL [Concomitant]
     Dosage: 40 MG, UNK
     Dates: end: 2014
  9. VELCADE [Suspect]
     Active Substance: BORTEZOMIB
     Dosage: 3.125 MG, UNK
     Route: 042
     Dates: start: 20140805

REACTIONS (4)
  - Constipation [Unknown]
  - Fluid retention [Recovered/Resolved]
  - Injection site rash [Recovered/Resolved]
  - Drug eruption [Recovering/Resolving]

NARRATIVE: CASE EVENT DATE: 20140606
